FAERS Safety Report 4841029-9 (Version None)
Quarter: 2005Q4

REPORT INFORMATION
  Report Type: 
  Country: None (occurrence: None)
  Receive Date: 20051130
  Receipt Date: 20050829
  Transmission Date: 20060501
  Serious: Yes (Hospitalization)
  Sender: FDA-Public Use
  Company Number: US-BRISTOL-MYERS SQUIBB COMPANY-13093273

PATIENT
  Age: 26 Year
  Sex: Male

DRUGS (4)
  1. ABILIFY [Suspect]
     Indication: BIPOLAR DISORDER
     Route: 048
     Dates: start: 20050401
  2. OLANZAPINE [Suspect]
     Dates: start: 20041101
  3. ALLEGRA [Concomitant]
  4. ATIVAN [Concomitant]

REACTIONS (1)
  - PANCREATITIS ACUTE [None]
